FAERS Safety Report 21946381 (Version 2)
Quarter: 2023Q1

REPORT INFORMATION
  Report Type: Report from Study
  Country: ES (occurrence: ES)
  Receive Date: 20230202
  Receipt Date: 20230224
  Transmission Date: 20230418
  Serious: No
  Sender: FDA-Public Use
  Company Number: ES-ABBVIE-4267086

PATIENT
  Age: 63 Year
  Sex: Female

DRUGS (3)
  1. CARBIDOPA\LEVODOPA [Suspect]
     Active Substance: CARBIDOPA\LEVODOPA
     Indication: Parkinson^s disease
     Route: 050
     Dates: start: 20200130
  2. CARBIDOPA\LEVODOPA [Suspect]
     Active Substance: CARBIDOPA\LEVODOPA
     Route: 050
  3. AMOXICILLIN [Concomitant]
     Active Substance: AMOXICILLIN
     Indication: Product used for unknown indication

REACTIONS (7)
  - Device power source issue [Recovered/Resolved]
  - Discharge [Not Recovered/Not Resolved]
  - Erythema [Unknown]
  - Suture rupture [Unknown]
  - Wound [Unknown]
  - Pain [Unknown]
  - Medical device site infection [Unknown]

NARRATIVE: CASE EVENT DATE: 20230106
